FAERS Safety Report 5797051-1 (Version None)
Quarter: 2008Q3

REPORT INFORMATION
  Report Type: 
  Country: None (occurrence: None)
  Receive Date: 20080701
  Receipt Date: 20080626
  Transmission Date: 20090109
  Serious: Yes (Death)
  Sender: FDA-Public Use
  Company Number: JP-SANOFI-SYNTHELABO-F01200701337

PATIENT
  Sex: Male
  Weight: 90 kg

DRUGS (13)
  1. ISOVORIN [Suspect]
     Dosage: UNK
     Route: 041
     Dates: start: 20070922, end: 20070922
  2. FLUOROURACIL [Suspect]
     Dosage: UNK
     Route: 041
     Dates: start: 20070922, end: 20070924
  3. LEUCON [Concomitant]
     Dosage: UNK
     Dates: start: 20070702, end: 20070924
  4. TRAVELMIN [Concomitant]
     Dosage: UNK
     Dates: start: 20070702, end: 20070924
  5. ELPLAT [Suspect]
     Indication: RECTAL CANCER RECURRENT
     Dosage: UNK
     Route: 041
     Dates: start: 20070905, end: 20070905
  6. KYTRIL [Concomitant]
     Dosage: UNK
     Dates: start: 20070922, end: 20070922
  7. SOLU-CORTEF [Concomitant]
     Dosage: UNK
     Dates: start: 20070922, end: 20070922
  8. SHAKUYAKU-KANZO-TO [Concomitant]
     Dosage: UNK
     Dates: start: 20070702, end: 20070924
  9. URSO 250 [Concomitant]
     Dosage: UNK
     Dates: start: 20070702, end: 20070924
  10. IRINOTECAN HCL [Suspect]
     Route: 041
     Dates: start: 20070922, end: 20070922
  11. 1 CONCOMITANT DRUG [Concomitant]
     Dosage: UNK
     Dates: start: 20070702, end: 20070924
  12. BEVACIZUMAB [Suspect]
     Route: 041
     Dates: start: 20070922, end: 20070922
  13. MUCOSTA [Concomitant]
     Dosage: UNK
     Dates: start: 20070702, end: 20070924

REACTIONS (1)
  - HAEMORRHAGE [None]
